FAERS Safety Report 10281925 (Version 2)
Quarter: 2014Q3

REPORT INFORMATION
  Report Type: Spontaneous
  Country: FR (occurrence: FR)
  Receive Date: 20140707
  Receipt Date: 20140709
  Transmission Date: 20150326
  Serious: Yes (Hospitalization, Other)
  Sender: FDA-Public Use
  Company Number: FR-PFIZER INC-2014182450

PATIENT
  Age: 68 Year
  Sex: Male

DRUGS (6)
  1. EFFEXOR LP [Suspect]
     Active Substance: VENLAFAXINE HYDROCHLORIDE
     Dosage: 75 MG, 2X/DAY
     Route: 048
  2. TAHOR [Concomitant]
     Active Substance: ATORVASTATIN CALCIUM
     Dosage: 20 MG, 1X/DAY (0-0-1)
  3. PANTOPRAZOLE [Concomitant]
     Active Substance: PANTOPRAZOLE SODIUM
     Dosage: 20 MG, DAILY (0-0-1)
  4. BISOPROLOL [Concomitant]
     Active Substance: BISOPROLOL
     Dosage: 2.5 MG, 2X/DAY (1-0-1)
  5. LEXOMIL [Concomitant]
     Active Substance: BROMAZEPAM
     Dosage: 3 MG, 1X/DAY (0-0-0.5)
  6. ASPEGIC [Suspect]
     Active Substance: ASPIRIN DL-LYSINE
     Indication: HAEMORRHAGIC STROKE
     Dosage: 100 MG, DAILY
     Route: 048
     Dates: end: 20140420

REACTIONS (5)
  - Cerebral haemorrhage [Unknown]
  - Condition aggravated [Recovered/Resolved with Sequelae]
  - Haemorrhagic stroke [Recovered/Resolved with Sequelae]
  - Endocarditis [Unknown]
  - Partial seizures [Unknown]

NARRATIVE: CASE EVENT DATE: 20140420
